FAERS Safety Report 24657165 (Version 3)
Quarter: 2024Q4

REPORT INFORMATION
  Report Type: Report from Study
  Country: US (occurrence: US)
  Receive Date: 20241125
  Receipt Date: 20241203
  Transmission Date: 20250115
  Serious: Yes (Other)
  Sender: UCB
  Company Number: US-UCBSA-2024060558

PATIENT
  Age: 15 Year
  Sex: Male
  Weight: 31 kg

DRUGS (3)
  1. FINTEPLA [Suspect]
     Active Substance: FENFLURAMINE
     Indication: Lennox-Gastaut syndrome
     Dosage: 8.8 MILLIGRAM, 2X/DAY (BID)
     Dates: start: 20230630
  2. FINTEPLA [Suspect]
     Active Substance: FENFLURAMINE
     Dosage: 17.6 MILLIGRAM, ONCE DAILY (QD)
  3. FINTEPLA [Suspect]
     Active Substance: FENFLURAMINE
     Dosage: 4 MILLILITER, 2X/DAY (BID)

REACTIONS (4)
  - Pulmonary arterial hypertension [Not Recovered/Not Resolved]
  - Tricuspid valve incompetence [Unknown]
  - CSF test abnormal [Not Recovered/Not Resolved]
  - Ventricular hypertrophy [Unknown]

NARRATIVE: CASE EVENT DATE: 20241015
